FAERS Safety Report 7465936-6 (Version None)
Quarter: 2011Q2

REPORT INFORMATION
  Report Type: 
  Country: None (occurrence: None)
  Receive Date: 20110509
  Receipt Date: 20100507
  Transmission Date: 20111010
  Serious: No
  Sender: FDA-Public Use
  Company Number: US-ALEXION-A201000535

PATIENT
  Sex: Male

DRUGS (7)
  1. SOLIRIS [Suspect]
     Dosage: UNK
     Route: 042
     Dates: start: 20091101
  2. METHADONE HCL [Concomitant]
     Indication: APLASTIC ANAEMIA
  3. ALPRAZOLAM [Concomitant]
     Indication: JOINT STIFFNESS
     Dosage: UNK
     Route: 048
  4. ADDERALL 10 [Concomitant]
     Indication: ASTHENIA
     Dosage: 20 MG, QD
     Route: 048
  5. METHADONE HCL [Concomitant]
     Indication: PAROXYSMAL NOCTURNAL HAEMOGLOBINURIA
     Dosage: UNK
     Route: 048
  6. SOLIRIS [Suspect]
     Indication: PAROXYSMAL NOCTURNAL HAEMOGLOBINURIA
     Dosage: UNK
     Route: 042
     Dates: start: 20090101, end: 20090101
  7. METHADONE HCL [Concomitant]
     Indication: JOINT STIFFNESS

REACTIONS (3)
  - ASTHENIA [None]
  - BLOOD TESTOSTERONE DECREASED [None]
  - NECK PAIN [None]
